FAERS Safety Report 11918447 (Version 1)
Quarter: 2016Q1

REPORT INFORMATION
  Report Type: Spontaneous
  Country: PH (occurrence: PH)
  Receive Date: 20160115
  Receipt Date: 20160115
  Transmission Date: 20160526
  Serious: Yes (Hospitalization)
  Sender: FDA-Public Use
  Company Number: PH-009507513-1601PHL003629

PATIENT
  Age: 65 Year
  Sex: Male

DRUGS (2)
  1. SIMVASTATIN. [Concomitant]
     Active Substance: SIMVASTATIN
     Dosage: UNK
     Route: 048
  2. COZAAR [Suspect]
     Active Substance: LOSARTAN POTASSIUM
     Indication: HYPERTENSION
     Dosage: 50 MG, ONCE A DAY
     Route: 048
     Dates: start: 2013

REACTIONS (2)
  - Pneumonia [Recovered/Resolved]
  - Asthma [Recovered/Resolved]
